FAERS Safety Report 17417796 (Version 1)
Quarter: 2020Q1

REPORT INFORMATION
  Report Type: Spontaneous
  Country: BR (occurrence: BR)
  Receive Date: 20200213
  Receipt Date: 20200213
  Transmission Date: 20200409
  Serious: Yes (Other)
  Sender: FDA-Public Use
  Company Number: BR-TAKEDA-2019TUS069216

PATIENT
  Age: 62 Year
  Sex: Female
  Weight: 92 kg

DRUGS (1)
  1. ENTYVIO [Suspect]
     Active Substance: VEDOLIZUMAB
     Indication: COLITIS ULCERATIVE
     Dosage: 300 MILLIGRAM
     Route: 042
     Dates: start: 2018

REACTIONS (9)
  - Lipids increased [Unknown]
  - Dyspnoea [Unknown]
  - Pneumonia [Recovering/Resolving]
  - Left ventricular hypertrophy [Unknown]
  - Peripheral swelling [Not Recovered/Not Resolved]
  - Pleural effusion [Unknown]
  - Cough [Not Recovered/Not Resolved]
  - Fatigue [Not Recovered/Not Resolved]
  - Cardiac failure congestive [Unknown]

NARRATIVE: CASE EVENT DATE: 201908
